FAERS Safety Report 7065635-9 (Version None)
Quarter: 2010Q4

REPORT INFORMATION
  Report Type: 
  Country: None (occurrence: None)
  Receive Date: 20101027
  Receipt Date: 20101020
  Transmission Date: 20110411
  Serious: Yes (Death)
  Sender: FDA-Public Use
  Company Number: LB-ROCHE-735752

PATIENT
  Age: 43 Year
  Sex: Male

DRUGS (3)
  1. HERCEPTIN [Suspect]
     Indication: METASTATIC GASTRIC CANCER
     Route: 042
  2. FLUOROURACIL [Concomitant]
     Indication: METASTATIC GASTRIC CANCER
     Route: 042
  3. CISPLATIN [Concomitant]
     Indication: METASTATIC GASTRIC CANCER
     Route: 042

REACTIONS (1)
  - DISEASE PROGRESSION [None]
